FAERS Safety Report 4927423-6 (Version None)
Quarter: 2006Q1

REPORT INFORMATION
  Report Type: 
  Country: None (occurrence: None)
  Receive Date: 20060228
  Receipt Date: 20060227
  Transmission Date: 20060701
  Serious: Yes (Other)
  Sender: FDA-Public Use
  Company Number: 200611061EU

PATIENT
  Age: 52 Year
  Sex: Female

DRUGS (1)
  1. NICORETTE [Suspect]
     Dosage: 4MG THREE TIMES PER DAY
     Route: 002
     Dates: start: 20040101

REACTIONS (1)
  - DEPENDENCE [None]
